FAERS Safety Report 16789334 (Version 1)
Quarter: 2019Q3

REPORT INFORMATION
  Report Type: Spontaneous
  Country: US (occurrence: US)
  Receive Date: 20190910
  Receipt Date: 20190910
  Transmission Date: 20191005
  Serious: No
  Sender: FDA-Public Use
  Company Number: US-B.I. PHARMACEUTICALS,INC./RIDGEFIELD-2019-US-100618

PATIENT
  Age: 67 Year
  Sex: Female

DRUGS (1)
  1. JARDIANCE [Suspect]
     Active Substance: EMPAGLIFLOZIN
     Indication: BLOOD GLUCOSE ABNORMAL
     Dosage: UNKNOWN
     Route: 065
     Dates: start: 2017

REACTIONS (1)
  - Oral candidiasis [Unknown]

NARRATIVE: CASE EVENT DATE: 201804
